FAERS Safety Report 7123832-8 (Version None)
Quarter: 2010Q4

REPORT INFORMATION
  Report Type: 
  Country: None (occurrence: None)
  Receive Date: 20101125
  Receipt Date: 20101122
  Transmission Date: 20110411
  Serious: Yes (Death, Hospitalization)
  Sender: FDA-Public Use
  Company Number: PHHY2010MX79496

PATIENT
  Sex: Female

DRUGS (2)
  1. EXELON [Suspect]
     Indication: DEMENTIA ALZHEIMER'S TYPE
     Dosage: 1 DF, QD (5 CM2)
     Route: 062
     Dates: start: 20100201
  2. EXELON [Suspect]
     Dosage: 1 DF, QD (10CM2)
     Route: 062

REACTIONS (3)
  - ATRIAL FIBRILLATION [None]
  - HIP FRACTURE [None]
  - PNEUMONIA [None]
